FAERS Safety Report 23513523 (Version 1)
Quarter: 2024Q1

REPORT INFORMATION
  Report Type: Spontaneous
  Country: US (occurrence: None)
  Receive Date: 20240212
  Receipt Date: 20240212
  Transmission Date: 20240409
  Serious: Yes (Hospitalization)
  Sender: FDA-Public Use
  Company Number: None

PATIENT
  Sex: Female

DRUGS (1)
  1. CAPECITABINE [Suspect]
     Active Substance: CAPECITABINE
     Indication: Rectal neoplasm
     Dosage: OTHER QUANTITY : 2 TAB AM-3 TAB PM;?FREQUENCY : TWICE A DAY;?
     Route: 048
     Dates: start: 20231226

REACTIONS (1)
  - Rectal haemorrhage [None]
